FAERS Safety Report 10196821 (Version 1)
Quarter: 2014Q2

REPORT INFORMATION
  Report Type: Spontaneous
  Country: FR (occurrence: None)
  Receive Date: 20140522
  Receipt Date: 20140522
  Transmission Date: 20141212
  Serious: Yes (Hospitalization)
  Sender: FDA-Public Use
  Company Number: 2014134125

PATIENT
  Age: 63 Year
  Sex: Male

DRUGS (13)
  1. FRAGMINE (DALTEPARIN SODIUM) SOLUTION FOR INJECTION [Suspect]
     Dosage: UNK, SUBCUTANEOUS
     Route: 058
     Dates: start: 20140402, end: 20140407
  2. MICARDIS (TELMISARTAN) [Concomitant]
  3. STILNOX [Concomitant]
  4. CONTRAMAL [Concomitant]
  5. KARDEGIC (ACETYLSALICYLATE LYSINE) [Concomitant]
  6. PETHIDINE (PETHIDINE) [Concomitant]
  7. TAHOR (ATORVASTATIN CALCIUM) [Concomitant]
  8. IMOVANE (ZOPICLONE) [Concomitant]
  9. LEXOMIL (BROMAZEPAM) [Concomitant]
  10. DEBRIDAT [Concomitant]
  11. BISOCE (BISOPROLOL FUMARATE) [Concomitant]
  12. INEXIUM/01479302/ (ESOMEPRAZOLE MAGNESIUM) [Concomitant]
  13. PRIMPERAN (METOCLOPRAMIDE) [Concomitant]

REACTIONS (3)
  - Heparin-induced thrombocytopenia [None]
  - Vomiting [None]
  - Jaundice [None]
